FAERS Safety Report 21903166 (Version 1)
Quarter: 2023Q1

REPORT INFORMATION
  Report Type: Spontaneous
  Country: US (occurrence: US)
  Receive Date: 20230124
  Receipt Date: 20230124
  Transmission Date: 20230418
  Serious: Yes (Hospitalization)
  Sender: FDA-Public Use
  Company Number: US-MYLANLABS-2021M1060391

PATIENT
  Age: 72 Year
  Sex: Male

DRUGS (4)
  1. TESTOSTERONE [Suspect]
     Active Substance: TESTOSTERONE
     Indication: Benign prostatic hyperplasia
     Dosage: UNK, IMPLANT
     Route: 065
  2. TESTOSTERONE [Suspect]
     Active Substance: TESTOSTERONE
     Indication: Fatigue
  3. TESTOSTERONE [Suspect]
     Active Substance: TESTOSTERONE
     Indication: Libido decreased
  4. APIXABAN [Suspect]
     Active Substance: APIXABAN
     Indication: Mesenteric vein thrombosis
     Dosage: UNK
     Route: 048

REACTIONS (3)
  - Polycythaemia [Recovered/Resolved]
  - Mesenteric vein thrombosis [Recovered/Resolved]
  - Off label use [Unknown]
